FAERS Safety Report 21081434 (Version 1)
Quarter: 2022Q3

REPORT INFORMATION
  Report Type: Spontaneous
  Country: AU (occurrence: None)
  Receive Date: 20220714
  Receipt Date: 20220714
  Transmission Date: 20221027
  Serious: Yes (Other)
  Sender: FDA-Public Use
  Company Number: 2022A252703

PATIENT
  Age: 28443 Day
  Sex: Female
  Weight: 54 kg

DRUGS (1)
  1. SYMBICORT [Suspect]
     Active Substance: BUDESONIDE\FORMOTEROL FUMARATE DIHYDRATE
     Indication: Dyspnoea
     Dosage: UNKNOWN
     Route: 055
     Dates: start: 20170101

REACTIONS (1)
  - Macular degeneration [Recovered/Resolved]

NARRATIVE: CASE EVENT DATE: 20200101
